FAERS Safety Report 6408137-2 (Version None)
Quarter: 2009Q4

REPORT INFORMATION
  Report Type: 
  Country: None (occurrence: None)
  Receive Date: 20091021
  Receipt Date: 20091012
  Transmission Date: 20100525
  Serious: Yes (Other)
  Sender: FDA-Public Use
  Company Number: US-BAYER-200935467GPV

PATIENT
  Sex: Male

DRUGS (8)
  1. GLUCOBAY [Suspect]
     Indication: DRUG USE FOR UNKNOWN INDICATION
     Dosage: TOTAL DAILY DOSE: 300 MG
     Route: 048
     Dates: end: 20090918
  2. CHLORPROMAZINE [Suspect]
     Indication: DRUG USE FOR UNKNOWN INDICATION
     Dosage: TOTAL DAILY DOSE: 250 MG
     Route: 048
     Dates: end: 20090918
  3. MAGNESIUM OXIDE [Suspect]
     Indication: DRUG USE FOR UNKNOWN INDICATION
     Dosage: TOTAL DAILY DOSE: 1.5 MG
     Route: 048
     Dates: end: 20090918
  4. ABILIFY [Suspect]
     Indication: SCHIZOPHRENIA
     Dosage: TOTAL DAILY DOSE: 30 MG
     Route: 048
     Dates: end: 20090918
  5. RISPERDAL [Suspect]
     Indication: DRUG USE FOR UNKNOWN INDICATION
     Dosage: TOTAL DAILY DOSE: 12 MG
     Route: 048
     Dates: end: 20090918
  6. LONASEN (BLONANSERIN) [Suspect]
     Indication: PSYCHIATRIC SYMPTOM
     Route: 048
     Dates: start: 20090924
  7. LONASEN (BLONANSERIN) [Suspect]
     Dosage: TOTAL DAILY DOSE: 24 MG
     Route: 048
     Dates: end: 20090918
  8. TASMOLIN [Suspect]
     Indication: DRUG USE FOR UNKNOWN INDICATION
     Dosage: TOTAL DAILY DOSE: 3 MG
     Route: 048
     Dates: end: 20090918

REACTIONS (2)
  - ILEUS [None]
  - URINARY RETENTION [None]
